FAERS Safety Report 14858224 (Version 2)
Quarter: 2018Q3

REPORT INFORMATION
  Report Type: Report from Study
  Country: US (occurrence: US)
  Receive Date: 20180508
  Receipt Date: 20180821
  Transmission Date: 20181010
  Serious: Yes (Death, Other)
  Sender: FDA-Public Use
  Company Number: US-CIPLA (EU) LIMITED-2018US17212

PATIENT

DRUGS (8)
  1. GEMCITABINE [Suspect]
     Active Substance: GEMCITABINE\GEMCITABINE HYDROCHLORIDE
     Indication: LUNG ADENOCARCINOMA
     Dosage: 900 MG/M2, ON DAYS 1 AND 8 EVERY 21 DAYS
  2. DOCETAXEL. [Suspect]
     Active Substance: DOCETAXEL
     Indication: LUNG ADENOCARCINOMA
     Dosage: 75 MG/M2, ON DAY 8 EVERY 21 DAYS
  3. DOCETAXEL. [Suspect]
     Active Substance: DOCETAXEL
     Dosage: 50 MG/M2, ON DAY 8 EVERY 21 DAYS
  4. DOCETAXEL. [Suspect]
     Active Substance: DOCETAXEL
     Dosage: 60 MG/M2, ON DAY 8 EVERY 21 DAYS
  5. GEMCITABINE [Suspect]
     Active Substance: GEMCITABINE\GEMCITABINE HYDROCHLORIDE
     Dosage: 600 MG/M2, ON DAYS 1 AND 8 EVERY 21 DAYS
  6. PEMBROLIZUMAB. [Suspect]
     Active Substance: PEMBROLIZUMAB
     Indication: LUNG ADENOCARCINOMA
     Dosage: 2 MG/KG, OVER 30 MIN EVERY 21 DAYS
     Route: 042
  7. PEMBROLIZUMAB. [Suspect]
     Active Substance: PEMBROLIZUMAB
     Dosage: UNK
  8. GEMCITABINE [Suspect]
     Active Substance: GEMCITABINE\GEMCITABINE HYDROCHLORIDE
     Dosage: 800 MG/M2, ON DAYS 1 AND 8 EVERY 21 DAYS

REACTIONS (17)
  - White blood cell count decreased [Unknown]
  - Pain in extremity [Unknown]
  - Syncope [Unknown]
  - Fatigue [Unknown]
  - Death [Fatal]
  - Thrombocytopenia [Unknown]
  - Weight decreased [Unknown]
  - Haematoma [Unknown]
  - Oedema peripheral [Unknown]
  - Pleural effusion [Unknown]
  - Hypertension [Unknown]
  - Rash [Unknown]
  - Tracheal haemorrhage [Unknown]
  - Anaemia [Unknown]
  - Hyponatraemia [None]
  - Neutropenia [Unknown]
  - Dysgeusia [Unknown]
